FAERS Safety Report 24654283 (Version 1)
Quarter: 2024Q4

REPORT INFORMATION
  Report Type: Spontaneous
  Country: US (occurrence: None)
  Receive Date: 20241122
  Receipt Date: 20241122
  Transmission Date: 20250115
  Serious: Yes (Other)
  Sender: Public
  Company Number: None

PATIENT
  Age: 16 Year
  Sex: Female
  Weight: 45 kg

DRUGS (1)
  1. LAMICTAL [Suspect]
     Active Substance: LAMOTRIGINE
     Indication: Bipolar disorder
     Dates: start: 20230301, end: 20230330

REACTIONS (5)
  - Aggression [None]
  - Anger [None]
  - Screaming [None]
  - Imprisonment [None]
  - Aggression [None]

NARRATIVE: CASE EVENT DATE: 20230316
